FAERS Safety Report 22362602 (Version 3)
Quarter: 2023Q2

REPORT INFORMATION
  Report Type: Report from Study
  Country: ES (occurrence: None)
  Receive Date: 20230524
  Receipt Date: 20230630
  Transmission Date: 20230722
  Serious: Yes (Hospitalization)
  Sender: FDA-Public Use
  Company Number: ES-ROCHE-3354383

PATIENT
  Age: 73 Year
  Sex: Female
  Weight: 50 kg

DRUGS (51)
  1. BEVACIZUMAB [Suspect]
     Active Substance: BEVACIZUMAB
     Indication: Colorectal cancer
     Dosage: SINGLE DOSE
     Route: 041
     Dates: start: 20221115, end: 20221115
  2. BEVACIZUMAB [Suspect]
     Active Substance: BEVACIZUMAB
     Route: 041
     Dates: start: 20221221, end: 20221221
  3. BEVACIZUMAB [Suspect]
     Active Substance: BEVACIZUMAB
     Dosage: SINGLE DOSE
     Route: 041
     Dates: start: 20230110
  4. BEVACIZUMAB [Suspect]
     Active Substance: BEVACIZUMAB
     Dosage: SINGLE DOSE
     Route: 041
     Dates: start: 20230124, end: 20230124
  5. BEVACIZUMAB [Suspect]
     Active Substance: BEVACIZUMAB
     Route: 041
     Dates: start: 20230228, end: 20230228
  6. BEVACIZUMAB [Suspect]
     Active Substance: BEVACIZUMAB
     Route: 041
     Dates: start: 20230314, end: 20230314
  7. BEVACIZUMAB [Suspect]
     Active Substance: BEVACIZUMAB
     Route: 041
     Dates: start: 20230328, end: 20230328
  8. BEVACIZUMAB [Suspect]
     Active Substance: BEVACIZUMAB
     Route: 041
     Dates: start: 20230411, end: 20230411
  9. ETRUMADENANT [Suspect]
     Active Substance: ETRUMADENANT
     Indication: Colorectal cancer
     Route: 048
     Dates: start: 20221115, end: 20230115
  10. ETRUMADENANT [Suspect]
     Active Substance: ETRUMADENANT
     Route: 048
     Dates: start: 20230110, end: 20230206
  11. ETRUMADENANT [Suspect]
     Active Substance: ETRUMADENANT
     Route: 048
     Dates: start: 20230228, end: 20230228
  12. ZIMBERELIMAB [Suspect]
     Active Substance: ZIMBERELIMAB
     Indication: Colorectal cancer
     Dosage: SINGLE DOSE
     Route: 041
     Dates: start: 20230110, end: 20230110
  13. ZIMBERELIMAB [Suspect]
     Active Substance: ZIMBERELIMAB
     Dosage: SINGLE DOSE
     Route: 041
     Dates: start: 20230124, end: 20230124
  14. ZIMBERELIMAB [Suspect]
     Active Substance: ZIMBERELIMAB
     Dosage: SINGLE DOSE
     Route: 041
     Dates: start: 20230228, end: 20230228
  15. ZIMBERELIMAB [Suspect]
     Active Substance: ZIMBERELIMAB
     Dosage: SINGLE DOSE
     Route: 041
     Dates: start: 20230314, end: 20230314
  16. ZIMBERELIMAB [Suspect]
     Active Substance: ZIMBERELIMAB
     Dosage: SINGLE DOSE
     Route: 041
     Dates: start: 20230328, end: 20230328
  17. ZIMBERELIMAB [Suspect]
     Active Substance: ZIMBERELIMAB
     Dosage: SINGLE DOSE
     Route: 041
     Dates: start: 20230411, end: 20230411
  18. ZIMBERELIMAB [Suspect]
     Active Substance: ZIMBERELIMAB
     Dosage: SINGLE DOSE
     Route: 041
     Dates: start: 20221221, end: 20221221
  19. LEUCOVORIN [Suspect]
     Active Substance: LEUCOVORIN
     Indication: Colorectal cancer
     Dosage: SINGLE DOSE
     Route: 041
     Dates: start: 20221115, end: 20221115
  20. LEUCOVORIN [Suspect]
     Active Substance: LEUCOVORIN
     Dosage: SINGLE DOSE
     Route: 041
     Dates: start: 20221221, end: 20221221
  21. LEUCOVORIN [Suspect]
     Active Substance: LEUCOVORIN
     Dosage: SINGLE DOSE
     Route: 041
     Dates: start: 20230110, end: 20230110
  22. LEUCOVORIN [Suspect]
     Active Substance: LEUCOVORIN
     Dosage: SINGLE DOSE
     Route: 041
     Dates: start: 20230124, end: 20230124
  23. LEUCOVORIN [Suspect]
     Active Substance: LEUCOVORIN
     Dosage: SINGLE DOSE
     Route: 041
     Dates: start: 20230228, end: 20230228
  24. LEUCOVORIN [Suspect]
     Active Substance: LEUCOVORIN
     Dosage: SINGLE DOSE
     Route: 041
     Dates: start: 20230314, end: 20230314
  25. LEUCOVORIN [Suspect]
     Active Substance: LEUCOVORIN
     Dosage: SINGLE DOSE
     Route: 041
     Dates: start: 20230328, end: 20230328
  26. LEUCOVORIN [Suspect]
     Active Substance: LEUCOVORIN
     Dosage: SINGLE DOSE
     Route: 041
     Dates: start: 20230411, end: 20230411
  27. OXALIPLATIN [Suspect]
     Active Substance: OXALIPLATIN
     Indication: Colorectal cancer
     Dosage: SINGLE DOSE
     Route: 041
     Dates: start: 20221115, end: 20221115
  28. OXALIPLATIN [Suspect]
     Active Substance: OXALIPLATIN
     Dosage: SINGLE DOSE
     Route: 041
     Dates: start: 20221221, end: 20221221
  29. OXALIPLATIN [Suspect]
     Active Substance: OXALIPLATIN
     Dosage: SINGLE DOSE
     Route: 041
     Dates: start: 20230110
  30. OXALIPLATIN [Suspect]
     Active Substance: OXALIPLATIN
     Dosage: SINGLE DOSE
     Route: 041
     Dates: start: 20230124, end: 20230124
  31. OXALIPLATIN [Suspect]
     Active Substance: OXALIPLATIN
     Dosage: SINGLE DOSE
     Route: 041
     Dates: start: 20230228, end: 20230228
  32. OXALIPLATIN [Suspect]
     Active Substance: OXALIPLATIN
     Dosage: SINGLE DOSE
     Route: 041
     Dates: start: 20230314, end: 20230314
  33. OXALIPLATIN [Suspect]
     Active Substance: OXALIPLATIN
     Dosage: SINGLE DOSE
     Route: 041
     Dates: start: 20230328, end: 20230328
  34. OXALIPLATIN [Suspect]
     Active Substance: OXALIPLATIN
     Dosage: SINGLE DOSE
     Route: 041
     Dates: start: 20230411, end: 20230411
  35. FLUOROURACIL [Suspect]
     Active Substance: FLUOROURACIL
     Indication: Colorectal cancer
     Dosage: SINGLE DOSE
     Route: 040
     Dates: start: 20221115, end: 20221115
  36. FLUOROURACIL [Suspect]
     Active Substance: FLUOROURACIL
     Dosage: SINGLE DOSE
     Route: 041
     Dates: start: 20221115, end: 20221115
  37. FLUOROURACIL [Suspect]
     Active Substance: FLUOROURACIL
     Dosage: SINGLE DOSE
     Route: 040
     Dates: start: 20221221, end: 20221221
  38. FLUOROURACIL [Suspect]
     Active Substance: FLUOROURACIL
     Dosage: SINGLE DOSE
     Route: 041
     Dates: start: 20221221, end: 20221221
  39. FLUOROURACIL [Suspect]
     Active Substance: FLUOROURACIL
     Route: 040
     Dates: start: 20230110, end: 20230110
  40. FLUOROURACIL [Suspect]
     Active Substance: FLUOROURACIL
     Route: 041
     Dates: start: 20230110, end: 20230110
  41. FLUOROURACIL [Suspect]
     Active Substance: FLUOROURACIL
     Route: 040
     Dates: start: 20230124, end: 20230124
  42. FLUOROURACIL [Suspect]
     Active Substance: FLUOROURACIL
     Route: 041
     Dates: start: 20230124, end: 20230124
  43. FLUOROURACIL [Suspect]
     Active Substance: FLUOROURACIL
     Route: 041
     Dates: start: 20230228
  44. FLUOROURACIL [Suspect]
     Active Substance: FLUOROURACIL
     Route: 040
     Dates: start: 20230228
  45. FLUOROURACIL [Suspect]
     Active Substance: FLUOROURACIL
     Route: 040
     Dates: start: 20230314
  46. FLUOROURACIL [Suspect]
     Active Substance: FLUOROURACIL
     Route: 041
     Dates: start: 20230314, end: 20230314
  47. FLUOROURACIL [Suspect]
     Active Substance: FLUOROURACIL
     Route: 041
     Dates: start: 20230314, end: 20230314
  48. FLUOROURACIL [Suspect]
     Active Substance: FLUOROURACIL
     Route: 040
     Dates: start: 20230328, end: 20230328
  49. FLUOROURACIL [Suspect]
     Active Substance: FLUOROURACIL
     Route: 041
     Dates: start: 20230328, end: 20230328
  50. FLUOROURACIL [Suspect]
     Active Substance: FLUOROURACIL
     Route: 040
     Dates: start: 20230411, end: 20230411
  51. FLUOROURACIL [Suspect]
     Active Substance: FLUOROURACIL
     Route: 041
     Dates: start: 20230411, end: 20230411

REACTIONS (1)
  - Diarrhoea [Recovered/Resolved]

NARRATIVE: CASE EVENT DATE: 20221117
